FAERS Safety Report 5195399-5 (Version None)
Quarter: 2006Q4

REPORT INFORMATION
  Report Type: 
  Country: None (occurrence: None)
  Receive Date: 20061229
  Receipt Date: 20061222
  Transmission Date: 20070319
  Serious: Yes (Hospitalization, Other)
  Sender: FDA-Public Use
  Company Number: US-PFIZER INC-2006155549

PATIENT
  Sex: Male
  Weight: 54.4 kg

DRUGS (7)
  1. CELEBREX [Suspect]
     Indication: ARTHRITIS
     Route: 048
  2. CELEBREX [Suspect]
     Indication: OSTEOARTHRITIS
  3. NORVASC [Concomitant]
     Route: 048
  4. ZOCOR [Concomitant]
     Route: 048
  5. ALLOPURINOL SODIUM [Concomitant]
     Route: 048
  6. ZANTAC [Concomitant]
     Route: 048
  7. FOSAMAX [Concomitant]
     Route: 048
     Dates: end: 20061101

REACTIONS (2)
  - DYSPNOEA [None]
  - POST PROCEDURAL COMPLICATION [None]
